FAERS Safety Report 24808130 (Version 2)
Quarter: 2025Q1

REPORT INFORMATION
  Report Type: Spontaneous
  Country: ES (occurrence: ES)
  Receive Date: 20250106
  Receipt Date: 20250120
  Transmission Date: 20250409
  Serious: Yes (Hospitalization)
  Sender: TEVA
  Company Number: ES-TEVA-VS-3282669

PATIENT
  Age: 44 Year
  Sex: Female

DRUGS (4)
  1. LAMOTRIGINE [Suspect]
     Active Substance: LAMOTRIGINE
     Indication: Mixed anxiety and depressive disorder
     Route: 065
  2. LORAZEPAM [Concomitant]
     Active Substance: LORAZEPAM
     Indication: Mixed anxiety and depressive disorder
  3. ALPRAZOLAM [Concomitant]
     Active Substance: ALPRAZOLAM
     Indication: Mixed anxiety and depressive disorder
  4. MIRTAZAPINE [Concomitant]
     Active Substance: MIRTAZAPINE
     Indication: Mixed anxiety and depressive disorder

REACTIONS (1)
  - Stevens-Johnson syndrome [Recovered/Resolved]
